FAERS Safety Report 9537818 (Version 2)
Quarter: 2013Q4

REPORT INFORMATION
  Report Type: Spontaneous
  Country: BR (occurrence: BR)
  Receive Date: 20130919
  Receipt Date: 20131021
  Transmission Date: 20140711
  Serious: No
  Sender: FDA-Public Use
  Company Number: PHHY2013BR104240

PATIENT
  Sex: Female
  Weight: 58 kg

DRUGS (2)
  1. FORASEQ [Suspect]
     Indication: ASTHMA
     Dosage: 2 DF, DAILY (2 CAPSULES OF EACH TREATMENT, DAILY)
  2. FORASEQ [Suspect]
     Indication: BRONCHITIS
     Dosage: 1 DF, DAILY (1 CAPSULES OF EACH TREATMENT, DAILY)

REACTIONS (5)
  - Arrhythmia [Recovered/Resolved]
  - Hypertension [Recovered/Resolved]
  - Headache [Recovered/Resolved]
  - Tremor [Recovered/Resolved]
  - Anxiety [Recovered/Resolved]
